FAERS Safety Report 21173817 (Version 1)
Quarter: 2022Q3

REPORT INFORMATION
  Report Type: Spontaneous
  Country: US (occurrence: US)
  Receive Date: 20220804
  Receipt Date: 20220804
  Transmission Date: 20221027
  Serious: No
  Sender: FDA-Public Use
  Company Number: US-PERRIGO-22US003985

PATIENT
  Age: 56 Year
  Sex: Male
  Weight: 90.703 kg

DRUGS (3)
  1. LORATADINE [Suspect]
     Active Substance: LORATADINE
     Indication: Rhinorrhoea
     Dosage: 10 MG, DAILY
     Route: 048
     Dates: start: 20220224
  2. ALKA SELTZER PLUS SINUS FORMULA [Concomitant]
     Indication: Sinus headache
     Dosage: UNK
     Route: 065
     Dates: start: 202202, end: 202203
  3. NAPROXEN [Concomitant]
     Active Substance: NAPROXEN
     Indication: Arthritis
     Dosage: UNK
     Route: 065

REACTIONS (1)
  - Drug ineffective [Unknown]

NARRATIVE: CASE EVENT DATE: 20220224
